FAERS Safety Report 7985392-9 (Version None)
Quarter: 2011Q4

REPORT INFORMATION
  Report Type: 
  Country: None (occurrence: None)
  Receive Date: 20111216
  Receipt Date: 20111207
  Transmission Date: 20120403
  Serious: Yes (Hospitalization, Other)
  Sender: FDA-Public Use
  Company Number: US-JNJFOC-20111204079

PATIENT
  Sex: Female
  Weight: 102 kg

DRUGS (7)
  1. BEVACIZUMAB [Suspect]
     Indication: BREAST CANCER
     Route: 042
     Dates: start: 20080512
  2. DOXORUBICIN HCL [Suspect]
     Indication: BREAST CANCER
     Route: 042
     Dates: start: 20080512
  3. PEGFILGRASTIM [Suspect]
     Indication: BREAST CANCER
     Dosage: ON DAY 2 OF CYCLE
     Dates: start: 20080524
  4. PEGFILGRASTIM [Suspect]
     Dates: start: 20080512
  5. PLACEBO [Suspect]
     Indication: BREAST CANCER
     Route: 042
     Dates: start: 20080512
  6. CYCLOPHOSPHAMIDE [Suspect]
     Indication: BREAST CANCER
     Route: 042
     Dates: start: 20080512
  7. FILGRASTIM [Concomitant]
     Route: 065

REACTIONS (2)
  - HAEMORRHOIDS [None]
  - UTERINE HAEMORRHAGE [None]
